FAERS Safety Report 4399576-2 (Version None)
Quarter: 2004Q3

REPORT INFORMATION
  Report Type: 
  Country: None (occurrence: None)
  Receive Date: 20040716
  Receipt Date: 20040712
  Transmission Date: 20050211
  Serious: Yes (Hospitalization)
  Sender: FDA-Public Use
  Company Number: GB-MERCK-0407GBR00123

PATIENT
  Age: 79 Year
  Sex: Female

DRUGS (2)
  1. [THERAPY UNSPECIFIED] [Concomitant]
     Route: 065
  2. FOSAMAX [Suspect]
     Route: 048
     Dates: start: 20040101

REACTIONS (2)
  - BONE PAIN [None]
  - CHRONIC OBSTRUCTIVE AIRWAYS DISEASE [None]
